FAERS Safety Report 6030534-8 (Version None)
Quarter: 2009Q1

REPORT INFORMATION
  Report Type: 
  Country: None (occurrence: None)
  Receive Date: 20090106
  Receipt Date: 20090106
  Transmission Date: 20090719
  Serious: Yes (Hospitalization, Other)
  Sender: FDA-Public Use
  Company Number: None

PATIENT
  Sex: Female
  Weight: 53.4 kg

DRUGS (3)
  1. TEMOZOLOMIDE [Suspect]
     Indication: ACUTE MYELOID LEUKAEMIA
     Dosage: 100MG/M2 QD PO
     Route: 048
     Dates: start: 20081212, end: 20081225
  2. TEMOZOLOMIDE [Suspect]
     Dosage: 200MG/M2 (INDUCTION  QD PO
     Route: 048
     Dates: start: 20081226, end: 20090101
  3. ZOFRAN [Concomitant]

REACTIONS (2)
  - HAEMOGLOBIN DECREASED [None]
  - MELAENA [None]
